FAERS Safety Report 19274008 (Version 1)
Quarter: 2021Q2

REPORT INFORMATION
  Report Type: Spontaneous
  Country: US (occurrence: US)
  Receive Date: 20210519
  Receipt Date: 20210519
  Transmission Date: 20210717
  Serious: Yes (Hospitalization, Other)
  Sender: FDA-Public Use
  Company Number: None

PATIENT
  Age: 54 Year
  Sex: Male

DRUGS (3)
  1. RITUXAN [Suspect]
     Active Substance: RITUXIMAB
  2. METHOTREXATE. [Suspect]
     Active Substance: METHOTREXATE
  3. TEMOZOLOMIDE 100MG CAP [Suspect]
     Active Substance: TEMOZOLOMIDE
     Indication: NON-HODGKIN^S LYMPHOMA
     Dosage: ?          OTHER DOSE:2 CAPS;OTHER FREQUENCY:QD ON 8?12;OTHER ROUTE:PO?28 DAY CYCLE??
     Dates: start: 20210325

REACTIONS (1)
  - Renal disorder [None]

NARRATIVE: CASE EVENT DATE: 20210511
